FAERS Safety Report 9472922 (Version 2)
Quarter: 2013Q3

REPORT INFORMATION
  Report Type: Spontaneous
  Country: US (occurrence: US)
  Receive Date: 20130823
  Receipt Date: 20130823
  Transmission Date: 20140515
  Serious: No
  Sender: FDA-Public Use
  Company Number: US-BRISTOL-MYERS SQUIBB COMPANY-17234816

PATIENT
  Age: 62 Year
  Sex: Male
  Weight: 85 kg

DRUGS (11)
  1. SPRYCEL [Suspect]
     Indication: CHRONIC MYELOID LEUKAEMIA
     Dosage: THERAPY STARTED 4 MONTHS AGO.
     Route: 048
     Dates: start: 201208
  2. CYMBALTA [Concomitant]
  3. XANAX [Concomitant]
  4. LYRICA [Concomitant]
     Route: 048
  5. RITALIN [Concomitant]
  6. TRAZODONE HCL [Concomitant]
  7. CYCLOBENZAPRINE [Concomitant]
  8. VITAMIN D3 [Concomitant]
  9. MEDROL [Concomitant]
     Dosage: MEDROL DOSEPAK
  10. FOLIC ACID [Concomitant]
  11. ZOLOFT [Concomitant]

REACTIONS (4)
  - Spinal pain [Unknown]
  - Periorbital oedema [Unknown]
  - Oedema peripheral [Unknown]
  - Back pain [Unknown]
